FAERS Safety Report 4796172-X (Version None)
Quarter: 2005Q4

REPORT INFORMATION
  Report Type: 
  Country: None (occurrence: None)
  Receive Date: 20051013
  Receipt Date: 20050818
  Transmission Date: 20060501
  Serious: Yes (Hospitalization)
  Sender: FDA-Public Use
  Company Number: US-SOLVAY-00205002671

PATIENT
  Age: 44 Year
  Sex: Male
  Weight: 64 kg

DRUGS (5)
  1. METHADONE HCL [Concomitant]
     Indication: PAIN
     Dosage: DAILY DOSE: 15 MILLIGRAM(S)
     Route: 048
  2. CREON [Suspect]
     Indication: PANCREATITIS CHRONIC
     Dosage: DAILY DOSE: 24 DOSAGE FORM
     Route: 048
     Dates: start: 19960101
  3. EFAVIRENZ [Concomitant]
     Indication: HIV INFECTION
     Dosage: DAILY DOSE: 600 MILLIGRAM(S)
     Route: 048
  4. 3TC [Concomitant]
     Indication: HIV INFECTION
     Dosage: DAILY DOSE: 300 MILLIGRAM(S)
     Route: 048
  5. TENOFOVIR [Concomitant]
     Indication: HIV INFECTION
     Dosage: DAILY DOSE: 300 MILLIGRAM(S)
     Route: 048

REACTIONS (2)
  - CONVULSION [None]
  - DIARRHOEA [None]
